FAERS Safety Report 11473637 (Version 1)
Quarter: 2015Q3

REPORT INFORMATION
  Report Type: Spontaneous
  Country: FR (occurrence: FR)
  Receive Date: 20150908
  Receipt Date: 20150908
  Transmission Date: 20151125
  Serious: Yes (Hospitalization, Other)
  Sender: FDA-Public Use
  Company Number: FR-JAZZ-JPI-P-015091

PATIENT
  Age: 52 Year
  Sex: Female

DRUGS (14)
  1. XYREM [Suspect]
     Active Substance: SODIUM OXYBATE
     Indication: CATAPLEXY
     Dosage: 2.25 G, BID
     Route: 048
     Dates: start: 20070524, end: 20070628
  2. XYREM [Suspect]
     Active Substance: SODIUM OXYBATE
     Indication: NARCOLEPSY
     Dosage: 3 G, BID
     Route: 048
     Dates: start: 20070629, end: 200707
  3. APROVEL (IRBESARTAN) [Concomitant]
     Indication: PRODUCT USED FOR UNKNOWN INDICATION
  4. XYREM [Suspect]
     Active Substance: SODIUM OXYBATE
     Indication: SUICIDE ATTEMPT
     Dosage: 3.75 G, BID
     Route: 048
     Dates: start: 200707, end: 20080109
  5. VENLAFAXINE HYDROCHLORIDE. [Concomitant]
     Active Substance: VENLAFAXINE HYDROCHLORIDE
     Indication: CATAPLEXY
     Route: 048
  6. XYREM [Suspect]
     Active Substance: SODIUM OXYBATE
     Dosage: SINGLE (UNSPECIFIED DOSE, 3 DOSES EVERY 3 HRS)
     Route: 048
     Dates: start: 20110112, end: 201101
  7. XYREM [Suspect]
     Active Substance: SODIUM OXYBATE
     Dosage: 4.5 G BID (XYREM RESTARTED)
     Route: 048
     Dates: start: 20110116
  8. MODAFINIL. [Concomitant]
     Active Substance: MODAFINIL
     Indication: CATAPLEXY
     Dosage: BID (2 TABLETS TWICE DAILY)
     Route: 048
  9. PARIET (RABEPRAZOLE) [Concomitant]
     Active Substance: RABEPRAZOLE SODIUM
     Indication: DYSPEPSIA
  10. XYREM [Suspect]
     Active Substance: SODIUM OXYBATE
     Dosage: 4.5 G, BID
     Route: 048
     Dates: start: 20091116, end: 20110111
  11. XYREM [Suspect]
     Active Substance: SODIUM OXYBATE
     Dosage: 4.5 G, BID
     Route: 048
     Dates: start: 20080110, end: 200802
  12. XYREM [Suspect]
     Active Substance: SODIUM OXYBATE
     Dosage: 4.25 G, BID
     Route: 048
     Dates: start: 200802, end: 20091115
  13. SOMAVERT (PEGVISOMANT) [Concomitant]
     Indication: ACROMEGALY
     Dosage: SINGLE (2 INJECTIONS WEEKLY)
  14. EZETROL (EZTIMIBE) [Concomitant]
     Indication: DYSLIPIDAEMIA

REACTIONS (6)
  - Intentional overdose [Recovered/Resolved]
  - Constipation [Unknown]
  - Myoclonus [Recovered/Resolved]
  - Poor quality sleep [Unknown]
  - Suicide attempt [Recovered/Resolved]
  - Anxiety [Unknown]

NARRATIVE: CASE EVENT DATE: 201101
